FAERS Safety Report 10756276 (Version 2)
Quarter: 2015Q1

REPORT INFORMATION
  Report Type: Report from Study
  Country: US (occurrence: US)
  Receive Date: 20150202
  Receipt Date: 20150224
  Transmission Date: 20150721
  Serious: Yes (Hospitalization)
  Sender: FDA-Public Use
  Company Number: US-ACTELION-A-US2015-111890

PATIENT
  Age: 83 Year
  Sex: Female

DRUGS (19)
  1. FUROSEMIDE. [Concomitant]
     Active Substance: FUROSEMIDE
     Dosage: 80 MG, BID
     Route: 048
  2. CYMBALTA [Concomitant]
     Active Substance: DULOXETINE HYDROCHLORIDE
     Dosage: 60 MG, UNK
  3. AMLODIPINE BESYLATE. [Concomitant]
     Active Substance: AMLODIPINE BESYLATE
     Dosage: 5 MG, UNK
     Route: 048
  4. SIMVASTATIN. [Concomitant]
     Active Substance: SIMVASTATIN
     Dosage: 80 MG, UNK
     Route: 048
  5. CLOPIDOGREL [Concomitant]
     Active Substance: CLOPIDOGREL BISULFATE
     Dosage: 75 MG, QAM
     Route: 048
  6. MACITENTAN [Suspect]
     Active Substance: MACITENTAN
     Indication: PULMONARY ARTERIAL HYPERTENSION
     Dosage: 10 MG, UNK
     Route: 048
     Dates: start: 20141002
  7. ASA [Concomitant]
     Active Substance: ASPIRIN
     Dosage: 81 MG, BID
     Route: 048
  8. TYLENOL WITH CODEINE NO.3 [Concomitant]
     Active Substance: ACETAMINOPHEN\CODEINE PHOSPHATE
     Dosage: 300 MG, Q4HRS
  9. LOTRISONE [Concomitant]
     Active Substance: BETAMETHASONE DIPROPIONATE\CLOTRIMAZOLE
     Dosage: UNK, BID
  10. GLIPIZIDE. [Concomitant]
     Active Substance: GLIPIZIDE
     Dosage: 10 MG, UNK
     Route: 048
  11. DOXAZOSIN MESYLATE. [Concomitant]
     Active Substance: DOXAZOSIN MESYLATE
     Dosage: 8 MG, QPM
     Route: 048
  12. FLUOCINONIDE. [Concomitant]
     Active Substance: FLUOCINONIDE
     Dosage: 0.1 %, BID
  13. ATENOLOL. [Concomitant]
     Active Substance: ATENOLOL
     Dosage: 100 MG, BID
  14. NEURONTIN [Concomitant]
     Active Substance: GABAPENTIN
     Dosage: 100 MG, BID
     Route: 048
  15. METOLAZONE. [Concomitant]
     Active Substance: METOLAZONE
     Dosage: 5 MG, QD
     Route: 048
  16. ISOSORBIDE [Concomitant]
     Active Substance: ISOSORBIDE
     Dosage: 30 MG, QAM
     Route: 048
  17. LOSARTAN [Concomitant]
     Active Substance: LOSARTAN
     Dosage: 50 MG, UNK
     Route: 048
  18. SENNA S [Concomitant]
     Active Substance: DOCUSATE SODIUM\SENNA LEAF
     Dosage: UNK, QPM
  19. NITROSTAT [Concomitant]
     Active Substance: NITROGLYCERIN
     Dosage: 0.4 MG, UNK
     Route: 060

REACTIONS (7)
  - Myocardial infarction [Unknown]
  - Liver function test abnormal [Unknown]
  - Dyspnoea [Unknown]
  - Pyelonephritis acute [Unknown]
  - Cystitis [Unknown]
  - Fatigue [Unknown]
  - Chest pain [Unknown]
